FAERS Safety Report 24915045 (Version 2)
Quarter: 2025Q4

REPORT INFORMATION
  Report Type: Spontaneous
  Country: JP (occurrence: JP)
  Receive Date: 20250203
  Receipt Date: 20251024
  Transmission Date: 20260117
  Serious: Yes (Life-Threatening)
  Sender: GENMAB
  Company Number: JP-GENMAB-2025-00135

PATIENT
  Age: 25 Year
  Sex: Male

DRUGS (1)
  1. EPKINLY [Suspect]
     Active Substance: EPCORITAMAB-BYSP
     Indication: Diffuse large B-cell lymphoma refractory
     Dosage: UNK
     Route: 058
     Dates: start: 202407, end: 202502

REACTIONS (1)
  - Respiratory disorder [Unknown]

NARRATIVE: CASE EVENT DATE: 20240701
